FAERS Safety Report 23658903 (Version 2)
Quarter: 2024Q1

REPORT INFORMATION
  Report Type: Spontaneous
  Country: US (occurrence: None)
  Receive Date: 20240321
  Receipt Date: 20240323
  Transmission Date: 20240409
  Serious: No
  Sender: FDA-Public Use
  Company Number: 2024A064744

PATIENT
  Sex: Female

DRUGS (1)
  1. BREZTRI [Suspect]
     Active Substance: BUDESONIDE\FORMOTEROL\GLYCOPYRROLATE
     Route: 055

REACTIONS (7)
  - Hypertension [Unknown]
  - Dizziness [Unknown]
  - Device use error [Unknown]
  - Device use confusion [Unknown]
  - Product dose omission issue [Unknown]
  - Device use issue [Unknown]
  - Wrong technique in device usage process [Unknown]
